FAERS Safety Report 6527655-X (Version None)
Quarter: 2010Q1

REPORT INFORMATION
  Report Type: 
  Country: None (occurrence: None)
  Receive Date: 20100105
  Receipt Date: 20091217
  Transmission Date: 20100710
  Serious: Yes (Other)
  Sender: FDA-Public Use
  Company Number: PHEH2008US04238

PATIENT
  Sex: Male

DRUGS (18)
  1. ZELNORM [Suspect]
     Dosage: 6 MG, BID
  2. COREG [Concomitant]
  3. LIPITOR [Concomitant]
     Dosage: 20 MG, QD
  4. PRILOSEC [Concomitant]
     Indication: DYSPEPSIA
     Dosage: UNK
     Dates: start: 19980101
  5. CARDIZEM [Concomitant]
     Dosage: 240 MG, QD
  6. PRAVACHOL [Concomitant]
  7. ASPIRIN [Concomitant]
  8. PREVACID [Concomitant]
  9. ACCUPRIL [Concomitant]
  10. BENICAR [Concomitant]
  11. VYTORIN [Concomitant]
  12. LISINOPRIL [Concomitant]
     Dosage: 10 MG, QD
  13. AMIODARONE HCL [Concomitant]
     Dosage: 200 MG, QD
  14. METOPROLOL TARTRATE [Concomitant]
     Dosage: 50 MG, BID
  15. LEVAQUIN [Concomitant]
  16. DIOVAN [Concomitant]
     Dosage: 80 MG, QD
     Route: 048
  17. PLAVIX [Concomitant]
     Dosage: 75 MG, UNK
     Route: 048
  18. ZOCOR [Concomitant]
     Dosage: 80 MG, UNK

REACTIONS (23)
  - ABDOMINAL PAIN UPPER [None]
  - ANEURYSMECTOMY [None]
  - ANGIOPLASTY [None]
  - ARRHYTHMIA [None]
  - ARTERIOSCLEROSIS [None]
  - BARRETT'S OESOPHAGUS [None]
  - CARDIAC FAILURE CONGESTIVE [None]
  - CARDIOMEGALY [None]
  - CHOLECYSTECTOMY [None]
  - CONSTIPATION [None]
  - CORONARY ANGIOPLASTY [None]
  - CORONARY ARTERY BYPASS [None]
  - CORONARY ARTERY DISEASE [None]
  - DRUG INEFFECTIVE [None]
  - EMOTIONAL DISTRESS [None]
  - GASTRITIS [None]
  - HIATUS HERNIA [None]
  - HYPERTENSIVE HEART DISEASE [None]
  - IMPLANTABLE DEFIBRILLATOR INSERTION [None]
  - INJURY [None]
  - PANCREATITIS ACUTE [None]
  - PERIPHERAL VASCULAR DISORDER [None]
  - STENT PLACEMENT [None]
